FAERS Safety Report 15262775 (Version 1)
Quarter: 2018Q3

REPORT INFORMATION
  Report Type: Spontaneous
  Country: US (occurrence: US)
  Receive Date: 20180809
  Receipt Date: 20180809
  Transmission Date: 20181010
  Serious: Yes (Hospitalization)
  Sender: FDA-Public Use
  Company Number: US-JNJFOC-20180732614

PATIENT
  Age: 50 Year
  Sex: Female
  Weight: 100.5 kg

DRUGS (1)
  1. INVOKANA [Suspect]
     Active Substance: CANAGLIFLOZIN
     Indication: PRODUCT USED FOR UNKNOWN INDICATION
     Route: 048
     Dates: end: 201512

REACTIONS (6)
  - Hyperglycaemia [Recovered/Resolved]
  - Acute kidney injury [Recovering/Resolving]
  - Off label use [Unknown]
  - Inappropriate schedule of drug administration [Unknown]
  - Pyelonephritis [Recovering/Resolving]
  - Pancreatitis acute [Recovering/Resolving]

NARRATIVE: CASE EVENT DATE: 201509
